FAERS Safety Report 7988422-3 (Version None)
Quarter: 2011Q4

REPORT INFORMATION
  Report Type: 
  Country: None (occurrence: None)
  Receive Date: 20111216
  Receipt Date: 20111027
  Transmission Date: 20120403
  Serious: Yes (Hospitalization)
  Sender: FDA-Public Use
  Company Number: DE-ROCHE-1000478

PATIENT
  Age: 71 Year
  Sex: Female
  Weight: 78 kg

DRUGS (7)
  1. KALINOR [Concomitant]
     Dosage: TOTAL DAILY DOSE: 1TABLET
  2. LEVOTHYROXINE SODIUM [Concomitant]
     Dosage: TOTAL DAILY DOSE:75/YG
  3. RAMIPRIL [Concomitant]
  4. ACTEMRA [Suspect]
     Indication: RHEUMATOID ARTHRITIS
     Route: 042
     Dates: start: 20110831
  5. RAMIPRIL [Concomitant]
     Dosage: RAMIPRIL PLUS(5/12, 5MG), TOTAL DAILY DOSE: 1 TABLET
  6. CELECTOL [Concomitant]
  7. FONDAPARINUX SODIUM [Concomitant]

REACTIONS (1)
  - ATRIAL FIBRILLATION [None]
